FAERS Safety Report 6553662-7 (Version None)
Quarter: 2010Q1

REPORT INFORMATION
  Report Type: 
  Country: None (occurrence: None)
  Receive Date: 20100127
  Receipt Date: 20100114
  Transmission Date: 20100710
  Serious: Yes (Hospitalization)
  Sender: FDA-Public Use
  Company Number: PHHY2009JP56422

PATIENT
  Age: 59 Year
  Sex: Male

DRUGS (3)
  1. IMATINIB [Suspect]
     Indication: CHRONIC MYELOID LEUKAEMIA
     Dosage: 400 MG DAILY
     Route: 048
  2. EXPECTORANTS [Concomitant]
  3. DIURETICS [Concomitant]

REACTIONS (12)
  - CHEST X-RAY ABNORMAL [None]
  - EMPHYSEMA [None]
  - FACE OEDEMA [None]
  - HILAR LYMPHADENOPATHY [None]
  - LARGE CELL LUNG CANCER STAGE III [None]
  - LUNG LOBECTOMY [None]
  - LYMPHADENECTOMY [None]
  - METASTASES TO LYMPH NODES [None]
  - OBSTRUCTIVE AIRWAYS DISORDER [None]
  - OEDEMA PERIPHERAL [None]
  - PULMONARY MASS [None]
  - SPUTUM RETENTION [None]
